FAERS Safety Report 14498763 (Version 2)
Quarter: 2019Q4

REPORT INFORMATION
  Report Type: Report from Study
  Country: US (occurrence: US)
  Receive Date: 20180207
  Receipt Date: 20191030
  Transmission Date: 20200122
  Serious: Yes (Hospitalization, Other)
  Sender: FDA-Public Use
  Company Number: US-TAKEDA-2018TUS002977

PATIENT
  Age: 32 Year
  Sex: Female

DRUGS (6)
  1. CAMRESE [Concomitant]
     Active Substance: ETHINYL ESTRADIOL\LEVONORGESTREL
     Dosage: UNK UNK, QD
  2. PRENATAL VITAMINS                  /02014401/ [Concomitant]
     Active Substance: VITAMINS
     Dosage: UNK UNK, QD
  3. VITAMIN D NOS [Concomitant]
     Active Substance: VITAMIN D NOS
     Dosage: 1.25 MG, 1/WEEK
  4. VEDOLIZUMAB [Suspect]
     Active Substance: VEDOLIZUMAB
     Indication: CROHN^S DISEASE
     Dosage: 300 MILLIGRAM, Q4WEEKS
     Route: 042
     Dates: start: 201705
  5. PREDNISONE. [Concomitant]
     Active Substance: PREDNISONE
     Dosage: 10 MG, QD
  6. CLARITIN [Concomitant]
     Active Substance: LORATADINE
     Dosage: UNK UNK, QD

REACTIONS (7)
  - Pyoderma [Not Recovered/Not Resolved]
  - Ileostomy [Unknown]
  - Off label use [Unknown]
  - Malnutrition [Unknown]
  - Crohn^s disease [Not Recovered/Not Resolved]
  - Intestinal obstruction [Unknown]
  - Transfusion [Unknown]

NARRATIVE: CASE EVENT DATE: 201705
